FAERS Safety Report 5455788-8 (Version None)
Quarter: 2007Q3

REPORT INFORMATION
  Report Type: 
  Country: None (occurrence: None)
  Receive Date: 20070918
  Receipt Date: 20070702
  Transmission Date: 20080115
  Serious: Yes (Other)
  Sender: FDA-Public Use
  Company Number: US-ASTRAZENECA-2006UW22683

PATIENT
  Sex: Male
  Weight: 144.1 kg

DRUGS (10)
  1. SEROQUEL [Suspect]
     Indication: SCHIZOPHRENIA
     Route: 048
     Dates: start: 20000509
  2. SEROQUEL [Suspect]
     Route: 048
     Dates: start: 20060530
  3. ABILIFY [Concomitant]
     Dates: start: 20060508
  4. CLOZARIL [Concomitant]
     Dates: start: 20061230
  5. HALDOL [Concomitant]
     Dates: start: 19980115
  6. RISPERDAL [Concomitant]
     Dates: start: 19980601
  7. ZYPREXA [Concomitant]
     Dates: start: 19990803
  8. ZOLOFT [Concomitant]
     Dates: start: 20020608
  9. DEPAKOTE [Concomitant]
     Dates: start: 20020608
  10. PAXIL [Concomitant]
     Dates: start: 19991130

REACTIONS (2)
  - DIABETES MELLITUS [None]
  - DIABETIC KETOACIDOSIS [None]
